FAERS Safety Report 7539283-8 (Version None)
Quarter: 2011Q2

REPORT INFORMATION
  Report Type: 
  Country: None (occurrence: None)
  Receive Date: 20110610
  Receipt Date: 20110602
  Transmission Date: 20111010
  Serious: Yes (Death, Life-Threatening, Hospitalization, Other)
  Sender: FDA-Public Use
  Company Number: US-ELI_LILLY_AND_COMPANY-US201106000730

PATIENT
  Age: 52 Year
  Sex: Male
  Weight: 158.73 kg

DRUGS (12)
  1. GLUCOTROL [Concomitant]
  2. PULMICORT [Concomitant]
  3. LOPRESSOR [Concomitant]
  4. PROTONIX [Concomitant]
  5. PREVACID [Concomitant]
  6. BYETTA [Suspect]
     Indication: DIABETES MELLITUS
     Dosage: UNK
     Dates: end: 20110531
  7. PRINIVIL [Concomitant]
  8. BROMINE [Concomitant]
     Dosage: UNK
  9. AFRIN                              /00070001/ [Concomitant]
  10. SPIRIVA [Concomitant]
  11. LASIX [Concomitant]
  12. LEXAPRO [Concomitant]

REACTIONS (5)
  - OEDEMA [None]
  - BRADYCARDIA [None]
  - TACHYCARDIA [None]
  - PANCREATITIS ACUTE [None]
  - MYOCARDIAL INFARCTION [None]
